FAERS Safety Report 4582322-7 (Version None)
Quarter: 2005Q1

REPORT INFORMATION
  Report Type: 
  Country: None (occurrence: None)
  Receive Date: 20050118
  Receipt Date: 20040629
  Transmission Date: 20050727
  Serious: No
  Sender: FDA-Public Use
  Company Number: 372740

PATIENT
  Age: 25 Year
  Sex: Female
  Weight: 85.3 kg

DRUGS (1)
  1. ROCEPHIN [Suspect]
     Indication: CELLULITIS
     Dosage: INTRAVENOUS
     Route: 042
     Dates: start: 20040429, end: 20040430

REACTIONS (4)
  - HYPERSENSITIVITY [None]
  - INJECTION SITE DISCOMFORT [None]
  - INJECTION SITE ERYTHEMA [None]
  - INJECTION SITE IRRITATION [None]
